FAERS Safety Report 24904800 (Version 2)
Quarter: 2025Q1

REPORT INFORMATION
  Report Type: Spontaneous
  Country: US (occurrence: US)
  Receive Date: 20250130
  Receipt Date: 20250225
  Transmission Date: 20250408
  Serious: Yes (Other)
  Sender: ALMIRALL, LLC
  Company Number: US-ALMIRALL, LLC-2025AQU000004

PATIENT

DRUGS (1)
  1. CORDRAN [Suspect]
     Active Substance: FLURANDRENOLIDE
     Indication: Eczema
     Route: 061

REACTIONS (3)
  - HER2 positive breast cancer [Unknown]
  - Eczema [Unknown]
  - Expired product administered [Unknown]

NARRATIVE: CASE EVENT DATE: 20221101
